FAERS Safety Report 21027726 (Version 1)
Quarter: 2022Q2

REPORT INFORMATION
  Report Type: Report from Study
  Country: FR (occurrence: None)
  Receive Date: 20220630
  Receipt Date: 20220630
  Transmission Date: 20220721
  Serious: Yes (Hospitalization)
  Sender: FDA-Public Use
  Company Number: FR-ROCHE-2760957

PATIENT
  Age: 47 Year
  Sex: Female
  Weight: 73 kg

DRUGS (34)
  1. OBINUTUZUMAB [Suspect]
     Active Substance: OBINUTUZUMAB
     Indication: Lupus nephritis
     Route: 042
     Dates: start: 20201208
  2. MYCOPHENOLATE MOFETIL [Suspect]
     Active Substance: MYCOPHENOLATE MOFETIL
     Indication: Lupus nephritis
     Dosage: START DATE OF MOST RECENT DOSE OF STUDY DRUG PRIOR TO SAE 28/JAN/2021?MOST RECENT DOSE OF STUDY DRUG
     Route: 048
     Dates: start: 20201208
  3. MYCOPHENOLATE MOFETIL [Suspect]
     Active Substance: MYCOPHENOLATE MOFETIL
     Route: 048
     Dates: start: 20080701, end: 20201208
  4. HYDROXYCHLOROQUINE [Concomitant]
     Active Substance: HYDROXYCHLOROQUINE
     Indication: Lupus nephritis
     Route: 048
     Dates: start: 19941224
  5. RAMIPRIL [Concomitant]
     Active Substance: RAMIPRIL
     Indication: Lupus nephritis
     Route: 048
     Dates: start: 20080920
  6. CALCIFEDIOL MONOHYDRATE [Concomitant]
     Route: 048
     Dates: start: 1994
  7. CALCIUM [Concomitant]
     Active Substance: CALCIUM
     Route: 048
     Dates: start: 1994
  8. CHOLECALCIFEROL [Concomitant]
     Active Substance: CHOLECALCIFEROL
     Route: 048
     Dates: start: 1994
  9. DESOGESTREL [Concomitant]
     Active Substance: DESOGESTREL
     Indication: Contraception
     Route: 048
     Dates: start: 20131201
  10. ACETAMINOPHEN [Concomitant]
     Active Substance: ACETAMINOPHEN
     Route: 048
     Dates: start: 20201208, end: 20201208
  11. ACETAMINOPHEN [Concomitant]
     Active Substance: ACETAMINOPHEN
     Route: 048
     Dates: start: 20201222, end: 20201222
  12. POLARAMINE [Concomitant]
     Active Substance: DEXCHLORPHENIRAMINE MALEATE
     Indication: Premedication
     Dosage: RECEIVED ON 22/DEC/2020
     Route: 042
     Dates: start: 20201208, end: 20201208
  13. ACETAMINOPHEN [Concomitant]
     Active Substance: ACETAMINOPHEN
     Dosage: ACETAMINOPHEN SIMILAR AGENT
     Route: 048
     Dates: start: 20201208, end: 20201208
  14. ACETAMINOPHEN [Concomitant]
     Active Substance: ACETAMINOPHEN
     Dosage: ACETAMINOPHEN SIMILAR AGENT
     Route: 048
     Dates: start: 20201222, end: 20201222
  15. DIPHENHYDRAMINE [Concomitant]
     Active Substance: DIPHENHYDRAMINE
     Dosage: EQUIVALENT DOSE OF A?SIMILAR AGENT
     Route: 042
     Dates: start: 20201222, end: 20201222
  16. DIPHENHYDRAMINE [Concomitant]
     Active Substance: DIPHENHYDRAMINE
     Dosage: EQUIVALENT DOSE OF A?SIMILAR AGENT
     Route: 042
     Dates: start: 20201208, end: 20201208
  17. COVID-19 VACCINE [Concomitant]
     Route: 030
     Dates: start: 20210301, end: 20210301
  18. PREDNISONE [Concomitant]
     Active Substance: PREDNISONE
     Indication: Nephritis
     Route: 048
     Dates: start: 20201215, end: 20201228
  19. PREDNISONE [Concomitant]
     Active Substance: PREDNISONE
     Indication: Lupus nephritis
     Route: 048
     Dates: start: 20201229, end: 20210111
  20. PREDNISONE [Concomitant]
     Active Substance: PREDNISONE
     Route: 048
     Dates: start: 20210112, end: 20210125
  21. PREDNISONE [Concomitant]
     Active Substance: PREDNISONE
     Route: 048
     Dates: start: 20210126, end: 20210207
  22. PREDNISONE [Concomitant]
     Active Substance: PREDNISONE
     Route: 048
     Dates: start: 20210208, end: 20210221
  23. PREDNISONE [Concomitant]
     Active Substance: PREDNISONE
     Route: 048
     Dates: start: 20210222, end: 20210307
  24. PREDNISONE [Concomitant]
     Active Substance: PREDNISONE
     Route: 048
     Dates: start: 20201125, end: 20201207
  25. PREDNISONE [Concomitant]
     Active Substance: PREDNISONE
     Route: 048
     Dates: start: 20201015, end: 20201124
  26. PREDNISONE [Concomitant]
     Active Substance: PREDNISONE
     Route: 048
     Dates: start: 20201209, end: 20201214
  27. PREDNISONE [Concomitant]
     Active Substance: PREDNISONE
     Route: 048
     Dates: start: 20210222, end: 20210307
  28. PNEUMOVAX 23 [Concomitant]
     Active Substance: PNEUMOCOCCAL VACCINE, POLYVALENT 23
     Route: 030
     Dates: start: 20210224, end: 20210224
  29. METHYLPREDNISOLONE [Concomitant]
     Active Substance: METHYLPREDNISOLONE
     Indication: Lupus nephritis
     Route: 042
     Dates: start: 20201124, end: 20201124
  30. METHYLPREDNISOLONE [Concomitant]
     Active Substance: METHYLPREDNISOLONE
     Route: 042
     Dates: start: 20201208, end: 20201208
  31. METHYLPREDNISOLONE [Concomitant]
     Active Substance: METHYLPREDNISOLONE
     Route: 042
     Dates: start: 20201222, end: 20201222
  32. METHYLPREDNISOLONE [Concomitant]
     Active Substance: METHYLPREDNISOLONE
     Route: 048
     Dates: start: 20201208, end: 20201208
  33. METHYLPREDNISOLONE [Concomitant]
     Active Substance: METHYLPREDNISOLONE
     Route: 042
     Dates: start: 20201222, end: 20201222
  34. METHYLPREDNISOLONE [Concomitant]
     Active Substance: METHYLPREDNISOLONE
     Route: 042
     Dates: start: 20201208, end: 20201208

REACTIONS (1)
  - Acute kidney injury [Recovered/Resolved]

NARRATIVE: CASE EVENT DATE: 20201208
